FAERS Safety Report 6983082-2 (Version None)
Quarter: 2010Q3

REPORT INFORMATION
  Report Type: 
  Country: None (occurrence: None)
  Receive Date: 20100914
  Receipt Date: 20100618
  Transmission Date: 20110219
  Serious: No
  Sender: FDA-Public Use
  Company Number: US-PFIZER INC-2010076588

PATIENT
  Sex: Female
  Weight: 95.238 kg

DRUGS (12)
  1. LYRICA [Suspect]
     Indication: MYALGIA
     Dosage: 50 MG, 2X/DAY
     Dates: start: 20100101, end: 20100501
  2. GABAPENTIN [Suspect]
     Indication: MYALGIA
     Dosage: 600 MG, UNK
     Route: 048
     Dates: start: 20100101, end: 20100101
  3. DICHLORALPHENAZONE/ISOMETHEPTENE/PARACETAMOL [Concomitant]
     Indication: PAIN
     Dosage: UNK, EVERY 4 HRS
  4. METOPROLOL [Concomitant]
     Indication: HYPERTENSION
     Dosage: 50 MG, 1X/DAY
     Route: 048
     Dates: start: 20040101
  5. LEVOTHYROXINE [Concomitant]
     Indication: THYROID DISORDER
     Dosage: 50 UG, 1X/DAY
     Route: 048
  6. SERTRALINE HYDROCHLORIDE [Concomitant]
     Indication: NECK PAIN
     Dosage: UNK
     Dates: start: 20090101
  7. SERTRALINE HYDROCHLORIDE [Concomitant]
     Indication: MUSCULOSKELETAL PAIN
  8. SERTRALINE HYDROCHLORIDE [Concomitant]
     Indication: BACK PAIN
  9. OMEPRAZOLE [Concomitant]
     Indication: HYPERCHLORHYDRIA
     Dosage: 20 MG, 1X/DAY
     Route: 048
  10. LIDOCAINE [Concomitant]
     Indication: NECK PAIN
     Dosage: UNK
     Route: 061
     Dates: start: 20090101
  11. LIDOCAINE [Concomitant]
     Indication: BACK PAIN
  12. LIDOCAINE [Concomitant]
     Indication: MUSCULOSKELETAL PAIN

REACTIONS (3)
  - ARTHRALGIA [None]
  - DRUG INEFFECTIVE [None]
  - MIGRAINE [None]
